FAERS Safety Report 4488104-9 (Version None)
Quarter: 2004Q4

REPORT INFORMATION
  Report Type: 
  Country: None (occurrence: None)
  Receive Date: 20041028
  Receipt Date: 20040719
  Transmission Date: 20050328
  Serious: Yes (Hospitalization, Disabling)
  Sender: FDA-Public Use
  Company Number: US-ROCHE-374834

PATIENT
  Age: 81 Year
  Sex: Male
  Weight: 64.4 kg

DRUGS (3)
  1. TORADOL [Suspect]
     Indication: PAIN
     Route: 030
     Dates: start: 20040416, end: 20040416
  2. ALBUTEROL [Concomitant]
     Indication: ASTHMA
     Route: 055
  3. COUMADIN [Concomitant]

REACTIONS (2)
  - ABASIA [None]
  - PAIN IN EXTREMITY [None]
